FAERS Safety Report 7040121-0 (Version None)
Quarter: 2010Q4

REPORT INFORMATION
  Report Type: 
  Country: None (occurrence: None)
  Receive Date: 20101006
  Receipt Date: 20100930
  Transmission Date: 20110411
  Serious: Yes (Death, Other)
  Sender: FDA-Public Use
  Company Number: 2010US003913

PATIENT

DRUGS (2)
  1. VIBATIV [Suspect]
     Indication: PRODUCT USED FOR UNKNOWN INDICATION
     Dosage: IV NOS
     Route: 042
  2. COUMADIN [Concomitant]

REACTIONS (3)
  - HAEMORRHAGIC STROKE [None]
  - INTERNATIONAL NORMALISED RATIO INCREASED [None]
  - RASH [None]
